FAERS Safety Report 12777969 (Version 1)
Quarter: 2016Q3

REPORT INFORMATION
  Report Type: Spontaneous
  Country: US (occurrence: US)
  Receive Date: 20160924
  Receipt Date: 20160924
  Transmission Date: 20161109
  Serious: No
  Sender: FDA-Public Use
  Company Number: US-JAZZ-2016-US-010774

PATIENT
  Sex: Female

DRUGS (44)
  1. XYREM [Suspect]
     Active Substance: SODIUM OXYBATE
     Indication: SLEEP DISORDER
     Dosage: 4.5 G, BID
     Route: 048
     Dates: start: 201404, end: 2014
  2. XYREM [Suspect]
     Active Substance: SODIUM OXYBATE
     Dosage: 4.5 G, BID
     Route: 048
     Dates: start: 2016
  3. LYRICA [Concomitant]
     Active Substance: PREGABALIN
  4. HYDROCHLOROTHIAZIDE. [Concomitant]
     Active Substance: HYDROCHLOROTHIAZIDE
  5. LIDODERM [Concomitant]
     Active Substance: LIDOCAINE
  6. PROBIOTIC [Concomitant]
     Active Substance: PROBIOTICS NOS
  7. SKELAXIN [Concomitant]
     Active Substance: METAXALONE
  8. AMBIEN [Concomitant]
     Active Substance: ZOLPIDEM TARTRATE
  9. PSEUDOEPHEDRINE [Concomitant]
     Active Substance: PSEUDOEPHEDRINE
  10. BIVIGAM [Concomitant]
     Active Substance: HUMAN IMMUNOGLOBULIN G
  11. FLONASE [Concomitant]
     Active Substance: FLUTICASONE PROPIONATE
  12. POTASSIUM ACETATE. [Concomitant]
     Active Substance: POTASSIUM ACETATE
  13. ESTRADIOL. [Concomitant]
     Active Substance: ESTRADIOL
  14. NALTREXONE HCL [Concomitant]
     Active Substance: NALTREXONE HYDROCHLORIDE
  15. POTASSIUM BROMIDE [Concomitant]
     Active Substance: POTASSIUM BROMIDE
  16. CORTEF [Concomitant]
     Active Substance: HYDROCORTISONE
  17. L-TYROSINE [Concomitant]
  18. XYREM [Suspect]
     Active Substance: SODIUM OXYBATE
     Dosage: 4.5 G, BID
     Route: 048
     Dates: start: 201603, end: 2016
  19. XYREM [Suspect]
     Active Substance: SODIUM OXYBATE
     Dosage: 2.25 G, BID
     Route: 048
     Dates: start: 2016, end: 2016
  20. ASPIRIN. [Concomitant]
     Active Substance: ASPIRIN
  21. CLIMARA [Concomitant]
     Active Substance: ESTRADIOL
  22. LISINOPRIL. [Concomitant]
     Active Substance: LISINOPRIL
  23. MULTIVITAMINS [Concomitant]
     Active Substance: VITAMINS
  24. L TRYPTOPHAN [Concomitant]
  25. LEVOTHYROXINE. [Concomitant]
     Active Substance: LEVOTHYROXINE
  26. LIOTHYRONINE SODIUM. [Concomitant]
     Active Substance: LIOTHYRONINE SODIUM
  27. CALCIUM +D [Concomitant]
     Active Substance: CALCIUM\VITAMIN D
  28. FLOVENT HFA [Concomitant]
     Active Substance: FLUTICASONE PROPIONATE
  29. METFORMIN HCL [Concomitant]
     Active Substance: METFORMIN HYDROCHLORIDE
  30. PROAIR HFA [Concomitant]
     Active Substance: ALBUTEROL SULFATE
  31. ZOLOFT [Concomitant]
     Active Substance: SERTRALINE HYDROCHLORIDE
  32. DOXYCYCLINE HYCLATE. [Concomitant]
     Active Substance: DOXYCYCLINE HYCLATE
  33. HEPARIN SODIUM. [Concomitant]
     Active Substance: HEPARIN SODIUM
  34. NYSTATIN. [Concomitant]
     Active Substance: NYSTATIN
  35. DIFLUCAN [Concomitant]
     Active Substance: FLUCONAZOLE
  36. NADH [Concomitant]
     Active Substance: NADH
  37. ALLEGRA ALLERGY [Concomitant]
     Active Substance: FEXOFENADINE HYDROCHLORIDE
  38. MAGNESIUM ALUMINO SILICATE [Concomitant]
  39. PROMETRIUM [Concomitant]
     Active Substance: PROGESTERONE
  40. TESTOSTERONE. [Concomitant]
     Active Substance: TESTOSTERONE
  41. VITAMIN B12 [Concomitant]
     Active Substance: CYANOCOBALAMIN
  42. FISH OIL [Concomitant]
     Active Substance: FISH OIL
  43. FLEXERIL [Concomitant]
     Active Substance: CYCLOBENZAPRINE HYDROCHLORIDE
  44. OMEPRAZOLE. [Concomitant]
     Active Substance: OMEPRAZOLE

REACTIONS (3)
  - Musculoskeletal stiffness [Not Recovered/Not Resolved]
  - Sleep paralysis [Not Recovered/Not Resolved]
  - Hangover [Unknown]

NARRATIVE: CASE EVENT DATE: 2016
